FAERS Safety Report 7727935-6 (Version None)
Quarter: 2011Q3

REPORT INFORMATION
  Report Type: 
  Country: None (occurrence: None)
  Receive Date: 20110905
  Receipt Date: 20110824
  Transmission Date: 20111222
  Serious: No
  Sender: FDA-Public Use
  Company Number: US-BIOGENIDEC-2011BI032909

PATIENT
  Sex: Male

DRUGS (2)
  1. TYSABRI [Suspect]
     Indication: MULTIPLE SCLEROSIS
     Route: 042
     Dates: start: 20091221, end: 20101111
  2. DEPAKOTE [Concomitant]
     Indication: MOOD SWINGS
     Dates: end: 20110101

REACTIONS (4)
  - SOCIAL AVOIDANT BEHAVIOUR [None]
  - MULTIPLE SCLEROSIS RELAPSE [None]
  - MALAISE [None]
  - FEELING ABNORMAL [None]
